FAERS Safety Report 8977012 (Version 1)
Quarter: 2012Q4

REPORT INFORMATION
  Report Type: 
  Country: US (occurrence: US)
  Receive Date: 20121220
  Receipt Date: 20121220
  Transmission Date: 20130627
  Serious: No
  Sender: FDA-Public Use
  Company Number: US-GLAXOSMITHKLINE-A0993860A

PATIENT
  Age: 72 Year
  Sex: Male

DRUGS (11)
  1. SORIATANE [Suspect]
     Indication: PSORIASIS
     Dosage: 25MG Per day
     Route: 048
     Dates: start: 2011
  2. ASPIRIN [Concomitant]
  3. VITAMIN C [Concomitant]
  4. PLAVIX [Concomitant]
  5. QUINAPRIL [Concomitant]
  6. METOPROLOL [Concomitant]
  7. MULTAQ [Concomitant]
  8. FINASTERIDE [Concomitant]
  9. SIMVASTATIN [Concomitant]
  10. DOVONEX [Concomitant]
  11. CLOBETASOL PROPIONATE [Concomitant]

REACTIONS (3)
  - Skin exfoliation [Recovered/Resolved]
  - Breast pain [Unknown]
  - Lymph node pain [Unknown]
